FAERS Safety Report 8004995-9 (Version None)
Quarter: 2011Q4

REPORT INFORMATION
  Report Type: 
  Country: None (occurrence: None)
  Receive Date: 20111223
  Receipt Date: 20111219
  Transmission Date: 20120403
  Serious: Yes (Hospitalization)
  Sender: FDA-Public Use
  Company Number: US-JNJFOC-20111001306

PATIENT
  Sex: Female
  Weight: 82.5 kg

DRUGS (16)
  1. VITAMIN D [Concomitant]
     Indication: NUTRITIONAL SUPPORT
     Dosage: 200 UNIT TWICE DAILY
     Route: 048
     Dates: start: 20030630
  2. PRILOSEC [Concomitant]
     Indication: GASTROOESOPHAGEAL REFLUX DISEASE
     Route: 048
     Dates: start: 20110308
  3. METHOTREXATE [Concomitant]
     Route: 058
     Dates: start: 20111006
  4. FOLIC ACID [Concomitant]
     Indication: NUTRITIONAL SUPPORT
     Route: 048
     Dates: start: 20030602
  5. METHOTREXATE [Concomitant]
     Indication: RHEUMATOID ARTHRITIS
     Route: 058
     Dates: start: 20060306, end: 20110902
  6. PREDNISONE [Concomitant]
     Indication: RHEUMATOID ARTHRITIS
     Route: 048
     Dates: start: 20110412
  7. E VITAMIN [Concomitant]
     Indication: NUTRITIONAL SUPPORT
     Dosage: 400 UNIT DAILY
     Route: 048
     Dates: start: 20061114
  8. FOSAMAX [Concomitant]
     Indication: OSTEOPOROSIS
     Route: 048
     Dates: start: 20070523
  9. EXTRA STRENGTH TYLENOL [Concomitant]
     Indication: RHEUMATOID ARTHRITIS
     Route: 048
     Dates: start: 20100105
  10. LISINOPRIL [Concomitant]
     Indication: HYPERTENSION
     Route: 048
     Dates: start: 20080811
  11. LOVAZA [Concomitant]
     Indication: NUTRITIONAL SUPPORT
     Route: 048
     Dates: start: 20100320
  12. GOLIMUMAB [Suspect]
     Route: 058
     Dates: start: 20110622
  13. CALCIUM [Concomitant]
     Indication: NUTRITIONAL SUPPORT
     Route: 048
     Dates: start: 20030630
  14. HYDROCORTISONE [Concomitant]
     Indication: ANAL FISSURE
     Route: 061
     Dates: start: 20110901
  15. GOLIMUMAB [Suspect]
     Indication: RHEUMATOID ARTHRITIS
     Route: 058
     Dates: start: 20110914
  16. VITAMIN C [Concomitant]
     Indication: NUTRITIONAL SUPPORT
     Route: 048
     Dates: start: 20110214

REACTIONS (5)
  - DEEP VEIN THROMBOSIS [None]
  - BLOOD UREA INCREASED [None]
  - BLOOD SODIUM DECREASED [None]
  - HAEMATOCRIT DECREASED [None]
  - HAEMOGLOBIN DECREASED [None]
